FAERS Safety Report 4402780-8 (Version None)
Quarter: 2004Q3

REPORT INFORMATION
  Report Type: 
  Country: None (occurrence: None)
  Receive Date: 20040721
  Receipt Date: 20040709
  Transmission Date: 20050211
  Serious: Yes (Hospitalization)
  Sender: FDA-Public Use
  Company Number: FR-BRISTOL-MYERS SQUIBB COMPANY-12636361

PATIENT
  Age: 56 Year
  Sex: Female

DRUGS (3)
  1. ATAZANAVIR [Suspect]
     Indication: HIV INFECTION
     Dates: start: 20020711, end: 20030728
  2. DIDANOSINE [Suspect]
     Indication: HIV INFECTION
     Dates: start: 19990901
  3. TENOFOVIR [Suspect]
     Indication: HIV INFECTION
     Dates: start: 20020401

REACTIONS (1)
  - CYTOLYTIC HEPATITIS [None]
